FAERS Safety Report 9310910 (Version 1)
Quarter: 2013Q1

REPORT INFORMATION
  Report Type: Spontaneous
  Country: US (occurrence: None)
  Receive Date: 20130228
  Receipt Date: 20130228
  Transmission Date: 20140127
  Serious: Yes (Death)
  Sender: FDA-Public Use
  Company Number: JPI-P-029886

PATIENT
  Age: 89 Year
  Sex: Female

DRUGS (1)
  1. XYREM [Suspect]
     Indication: CATAPLEXY
     Dosage: 4.5 GM (2.25 GM, 2 IN 1D) ORAL
     Route: 048
     Dates: start: 20070104

REACTIONS (2)
  - Pneumonia [None]
  - Cardiac arrest [None]
